FAERS Safety Report 18335764 (Version 2)
Quarter: 2021Q2

REPORT INFORMATION
  Report Type: Spontaneous
  Country: US (occurrence: US)
  Receive Date: 20201001
  Receipt Date: 20210405
  Transmission Date: 20210717
  Serious: Yes (Death, Other)
  Sender: FDA-Public Use
  Company Number: US-OTSUKA-2020_023610

PATIENT
  Sex: Male

DRUGS (4)
  1. VOLASERTIB [Suspect]
     Active Substance: VOLASERTIB
     Dosage: 350 MG, UNK
     Route: 065
  2. DECITABINE. [Suspect]
     Active Substance: DECITABINE
     Indication: ACUTE MYELOID LEUKAEMIA
     Dosage: 20 MG/M2, DAYS 1?5
     Route: 065
  3. VOLASERTIB [Suspect]
     Active Substance: VOLASERTIB
     Dosage: 300 MG, UNK
     Route: 065
  4. VOLASERTIB [Suspect]
     Active Substance: VOLASERTIB
     Indication: ACUTE MYELOID LEUKAEMIA
     Dosage: 400 MG, UNK
     Route: 065

REACTIONS (3)
  - Anaemia [Fatal]
  - Myelosuppression [Unknown]
  - Thrombocytopenia [Unknown]
